FAERS Safety Report 4531713-9 (Version None)
Quarter: 2004Q4

REPORT INFORMATION
  Report Type: 
  Country: None (occurrence: None)
  Receive Date: 20041206
  Receipt Date: 20040922
  Transmission Date: 20050328
  Serious: No
  Sender: FDA-Public Use
  Company Number: USA040979006

PATIENT
  Age: 39 Year
  Sex: Female
  Weight: 73 kg

DRUGS (6)
  1. CYMBALTA [Suspect]
     Indication: DEPRESSION
     Dosage: 30 MG DAY
     Dates: start: 20040921
  2. OXYCONTIN [Concomitant]
  3. OXYCODONE HCL [Concomitant]
  4. FIORINAL W/CODEINE [Concomitant]
  5. KLONOPIN (CLORAZEPAM) [Concomitant]
  6. PHENERGAN [Concomitant]

REACTIONS (3)
  - FEELING ABNORMAL [None]
  - HYPERSOMNIA [None]
  - MEMORY IMPAIRMENT [None]
